FAERS Safety Report 12609550 (Version 1)
Quarter: 2016Q3

REPORT INFORMATION
  Report Type: Spontaneous
  Country: US (occurrence: US)
  Receive Date: 20160801
  Receipt Date: 20160801
  Transmission Date: 20161109
  Serious: Yes (Other)
  Sender: FDA-Public Use
  Company Number: US-TEVA-667050USA

PATIENT
  Age: 3 Year
  Sex: Male
  Weight: 12.26 kg

DRUGS (2)
  1. BACLOFEN. [Suspect]
     Active Substance: BACLOFEN
     Indication: TRISOMY 13
     Route: 065
  2. BACLOFEN. [Suspect]
     Active Substance: BACLOFEN
     Indication: NERVOUS SYSTEM DISORDER

REACTIONS (8)
  - Seizure [Unknown]
  - Overdose [Unknown]
  - Drug dispensing error [Unknown]
  - Heart rate increased [Unknown]
  - Muscle tightness [Unknown]
  - Oxygen saturation decreased [Unknown]
  - Respiratory distress [Unknown]
  - Withdrawal syndrome [Unknown]
